FAERS Safety Report 8563589-7 (Version None)
Quarter: 2012Q3

REPORT INFORMATION
  Report Type: 
  Country: None (occurrence: None)
  Receive Date: 20120803
  Receipt Date: 20120727
  Transmission Date: 20120928
  Serious: Yes (Disabling)
  Sender: FDA-Public Use
  Company Number: US-009507513-1205USA00425

PATIENT

DRUGS (7)
  1. DULERA [Suspect]
  2. XOPENEX [Concomitant]
  3. IBUPROFEN (ADVIL) [Concomitant]
  4. ALLEGRA [Concomitant]
  5. PREVACID [Concomitant]
  6. SINGULAIR [Suspect]
     Indication: ASTHMA
     Dosage: 10 MG, QD
     Route: 048
     Dates: start: 20120326, end: 20120501
  7. HYDROCHLOROTHIAZIDE [Concomitant]

REACTIONS (2)
  - GASTRITIS [None]
  - OESOPHAGITIS [None]
